FAERS Safety Report 24221640 (Version 3)
Quarter: 2024Q3

REPORT INFORMATION
  Report Type: Report from Study
  Country: DE (occurrence: DE)
  Receive Date: 20240819
  Receipt Date: 20240828
  Transmission Date: 20241016
  Serious: Yes (Hospitalization)
  Sender: SANDOZ
  Company Number: DE-SZ09-GXKR2013DE002867

PATIENT
  Age: 46 Year
  Sex: Male

DRUGS (5)
  1. FILGRASTIM [Suspect]
     Active Substance: FILGRASTIM
     Dosage: 30 MIU, QD
     Route: 058
     Dates: start: 20130824, end: 20130826
  2. FILGRASTIM [Suspect]
     Active Substance: FILGRASTIM
     Indication: Haematopoietic stem cell mobilisation
     Dosage: 78 MIU, QD
     Route: 058
     Dates: start: 20130824, end: 20130826
  3. FILGRASTIM [Suspect]
     Active Substance: FILGRASTIM
     Dosage: 2340 UG
     Route: 058
  4. ASPIRIN [Concomitant]
     Active Substance: ASPIRIN
     Indication: Carotid arteriosclerosis
     Dosage: 100 MG, UNKNOWN
     Route: 048
     Dates: start: 20130821
  5. SIMVASTATIN [Concomitant]
     Active Substance: SIMVASTATIN
     Indication: Hypercholesterolaemia
     Dosage: 20 MG, UNKNOWN
     Route: 048

REACTIONS (8)
  - Presyncope [Recovered/Resolved]
  - Nasopharyngitis [Recovered/Resolved]
  - Vertigo [Recovered/Resolved]
  - Hyperuricaemia [Unknown]
  - Bone pain [Recovered/Resolved]
  - Bone pain [Recovered/Resolved]
  - Bone pain [Recovered/Resolved]
  - Back pain [Recovered/Resolved]

NARRATIVE: CASE EVENT DATE: 20130824
